FAERS Safety Report 4521255-9 (Version None)
Quarter: 2004Q4

REPORT INFORMATION
  Report Type: 
  Country: None (occurrence: None)
  Receive Date: 20041208
  Receipt Date: 20041129
  Transmission Date: 20050328
  Serious: Yes (Death)
  Sender: FDA-Public Use
  Company Number: JP-JNJFOC-20041106511

PATIENT
  Sex: Male

DRUGS (17)
  1. TRAMADOL HCL [Suspect]
     Indication: CANCER PAIN
     Route: 049
     Dates: start: 20030527, end: 20030529
  2. MORPHINE SULFATE [Suspect]
     Route: 049
  3. MORPHINE SULFATE [Suspect]
     Route: 049
  4. MORPHINE SULFATE [Suspect]
     Route: 049
  5. MORPHINE SULFATE [Suspect]
     Route: 049
  6. MORPHINE SULFATE [Suspect]
     Indication: CANCER PAIN
     Route: 049
  7. BETAHISTINE MESILATE [Concomitant]
     Dates: start: 20030509, end: 20030530
  8. DOMPERIDONE [Concomitant]
     Dates: start: 20021108, end: 20030531
  9. TRIMEBUTINE MALEATE [Concomitant]
     Dates: start: 20021108, end: 20030531
  10. PANCREATIC ENZYME COMBINED DRUG [Concomitant]
     Dates: start: 20021108, end: 20030531
  11. RANITIDINE HYDROCHLORIDE [Concomitant]
     Dates: start: 20021108, end: 20030531
  12. DICLOPENAC SODIUM [Concomitant]
     Dates: start: 20030430, end: 20030531
  13. MAGNESIUM OXIDE [Concomitant]
     Dates: start: 20030410, end: 20030531
  14. SENNOSIDE [Concomitant]
     Dates: start: 20030430, end: 20030531
  15. METOCLOPRAMIDE [Concomitant]
     Dates: start: 20030509, end: 20030531
  16. METOCLOPRAMIDE [Concomitant]
     Dates: start: 20030509, end: 20030531
  17. HALDOL [Concomitant]
     Route: 042
     Dates: start: 20030531, end: 20030531

REACTIONS (10)
  - COLD SWEAT [None]
  - CYANOSIS [None]
  - HALLUCINATION [None]
  - HEART RATE INCREASED [None]
  - HEART SOUNDS ABNORMAL [None]
  - INCOHERENT [None]
  - MYDRIASIS [None]
  - NYSTAGMUS [None]
  - PNEUMONIA ASPIRATION [None]
  - STRIDOR [None]
